FAERS Safety Report 25234263 (Version 1)
Quarter: 2025Q2

REPORT INFORMATION
  Report Type: Spontaneous
  Country: US (occurrence: US)
  Receive Date: 20250424
  Receipt Date: 20250424
  Transmission Date: 20250716
  Serious: No
  Sender: MYLAN
  Company Number: US-MYLANLABS-2025M1032907

PATIENT
  Sex: Female
  Weight: 80.74 kg

DRUGS (1)
  1. ESTRADIOL TRANSDERMAL SYSTEM [Suspect]
     Active Substance: ESTRADIOL
     Indication: Menopausal symptoms
     Dosage: 0.0375 MILLIGRAM, QD (PER DAY, ONCE WEEKLY)

REACTIONS (5)
  - Application site laceration [Unknown]
  - Skin abrasion [Unknown]
  - Application site scab [Unknown]
  - Application site erythema [Recovered/Resolved]
  - Product adhesion issue [Unknown]
